FAERS Safety Report 5479236-7 (Version None)
Quarter: 2007Q4

REPORT INFORMATION
  Report Type: 
  Country: None (occurrence: None)
  Receive Date: 20071008
  Receipt Date: 20070928
  Transmission Date: 20080405
  Serious: Yes (Other)
  Sender: FDA-Public Use
  Company Number: PHFR2007GB02835

PATIENT
  Sex: Male

DRUGS (4)
  1. TEGRETOL RETARD [Suspect]
     Dosage: 200MG DAILY
     Route: 048
  2. METHOTREXATE [Concomitant]
     Indication: RHEUMATOID ARTHRITIS
     Route: 065
  3. ANTIHYPERTENSIVES [Concomitant]
     Indication: HYPERTENSION
     Route: 065
  4. ARTHROTEC [Concomitant]
     Route: 065

REACTIONS (4)
  - DRUG EFFECT DECREASED [None]
  - PROSTATECTOMY [None]
  - STENT PLACEMENT [None]
  - URETHRAL STENOSIS [None]
